FAERS Safety Report 8037566-9 (Version None)
Quarter: 2012Q1

REPORT INFORMATION
  Report Type: 
  Country: None (occurrence: None)
  Receive Date: 20120111
  Receipt Date: 20120106
  Transmission Date: 20120608
  Serious: No
  Sender: FDA-Public Use
  Company Number: US-B.I. PHARMACEUTICALS,INC./RIDGEFIELD-2011-BP-26626BP

PATIENT
  Sex: Female

DRUGS (3)
  1. PRADAXA [Suspect]
     Indication: ATRIAL FIBRILLATION
     Dosage: 300 MG
     Route: 048
     Dates: start: 20101201
  2. BYSTOLIC [Concomitant]
     Indication: HYPERTENSION
     Dates: start: 20110601
  3. PRADAXA [Suspect]
     Indication: PAROXYSMAL ARRHYTHMIA

REACTIONS (1)
  - ALOPECIA [None]
